FAERS Safety Report 8017318-6 (Version None)
Quarter: 2012Q1

REPORT INFORMATION
  Report Type: 
  Country: None (occurrence: None)
  Receive Date: 20120102
  Receipt Date: 20111221
  Transmission Date: 20120608
  Serious: Yes (Hospitalization)
  Sender: FDA-Public Use
  Company Number: FR-ROCHE-1025671

PATIENT
  Sex: Female

DRUGS (11)
  1. PREDNISONE TAB [Concomitant]
  2. SINGULAIR [Concomitant]
  3. XOLAIR [Suspect]
     Route: 058
     Dates: start: 20110926
  4. XOLAIR [Suspect]
     Indication: BRONCHOPULMONARY ASPERGILLOSIS ALLERGIC
     Route: 058
     Dates: start: 20110912
  5. ESOMEPRAZOLE SODIUM [Concomitant]
  6. DESLORATADINE [Concomitant]
  7. XOLAIR [Suspect]
     Route: 058
     Dates: start: 20111011
  8. DESOGESTREL AND ETHINYL ESTRADIOL [Concomitant]
  9. VENTOLIN [Concomitant]
  10. POTASSIUM CHLORIDE [Concomitant]
  11. FLUTICASONE PROPIONATE/SALMETEROL [Concomitant]

REACTIONS (5)
  - VIRAL INFECTION [None]
  - HYPERTHERMIA [None]
  - PHOTOPHOBIA [None]
  - WHITE BLOOD CELL COUNT INCREASED [None]
  - HEADACHE [None]
